FAERS Safety Report 13690293 (Version 1)
Quarter: 2020Q3

REPORT INFORMATION
  Report Type: Report from Study
  Country: CA (occurrence: CA)
  Receive Date: 20170626
  Receipt Date: 20170626
  Transmission Date: 20201104
  Serious: Yes (Hospitalization)
  Sender: FDA-Public Use
  Company Number: CA-PFIZER INC-2017250914

PATIENT
  Age: 68 Year
  Sex: Male

DRUGS (18)
  1. PEMETREXED. [Suspect]
     Active Substance: PEMETREXED
     Indication: NON-SMALL CELL LUNG CANCER
     Dosage: 1103 MG, D1, EVERY 21 DAYS (X 4 CYCLES) THEN EVERY 28 DAYS
     Route: 042
     Dates: start: 20170524
  2. TREMELIMUMAB. [Suspect]
     Active Substance: TREMELIMUMAB
     Indication: NON-SMALL CELL LUNG CANCER
     Dosage: 75 MG, D1, EVERY 21 DAYS (X 4 CYCLES)
     Route: 042
     Dates: start: 20170524
  3. DECADRON [Concomitant]
     Active Substance: DEXAMETHASONE
     Indication: PROPHYLAXIS
     Dosage: UNK
     Route: 065
     Dates: start: 20170523
  4. FOLIC ACID. [Concomitant]
     Active Substance: FOLIC ACID
     Indication: NUTRITIONAL SUPPLEMENTATION
     Dosage: UNK
     Route: 065
     Dates: start: 20170518
  5. NYSTATIN. [Concomitant]
     Active Substance: NYSTATIN
     Indication: MUCOSAL INFLAMMATION
     Dosage: UNK
     Route: 065
     Dates: start: 20170518
  6. VITAMIN B12 [Concomitant]
     Active Substance: CYANOCOBALAMIN
     Indication: NUTRITIONAL SUPPLEMENTATION
     Dosage: UNK
     Route: 065
     Dates: start: 2013
  7. TYLENOL [Concomitant]
     Active Substance: ACETAMINOPHEN
     Indication: ARTHRALGIA
     Dosage: UNK
     Route: 065
     Dates: start: 20170518
  8. ZOMETA [Concomitant]
     Active Substance: ZOLEDRONIC ACID
     Indication: HYPERCALCAEMIA OF MALIGNANCY
     Dosage: UNK
     Route: 065
     Dates: start: 20170329
  9. STEMETIL /00013301/ [Concomitant]
     Active Substance: PROCHLORPERAZINE
     Indication: PROPHYLAXIS
     Dosage: UNK
     Route: 065
     Dates: start: 20170524
  10. CARBOPLATIN. [Suspect]
     Active Substance: CARBOPLATIN
     Indication: NON-SMALL CELL LUNG CANCER
     Dosage: 580 MG, D1, EVERY 21 DAYS
     Route: 042
     Dates: start: 20170524
  11. ALFUZOSIN [Concomitant]
     Active Substance: ALFUZOSIN
     Indication: NEPHROLITHIASIS
     Route: 065
     Dates: start: 2011
  12. DURVALUMAB. [Suspect]
     Active Substance: DURVALUMAB
     Indication: NON-SMALL CELL LUNG CANCER
     Dosage: 1500 MG, D1, EVERY 21 DAYS (X 4 CYCLES), THEN EVERY 28 DAYS
     Route: 042
     Dates: start: 20170524
  13. TYLENOL EXTRA STRENGTH [Concomitant]
     Active Substance: ACETAMINOPHEN
     Indication: ARTHRALGIA
     Dosage: UNK
     Route: 065
     Dates: start: 201702
  14. DECADRON [Concomitant]
     Active Substance: DEXAMETHASONE
     Indication: RADIOTHERAPY
     Dosage: UNK
     Route: 065
     Dates: start: 20170510, end: 20170516
  15. PRAVASTATIN. [Concomitant]
     Active Substance: PRAVASTATIN
     Indication: HYPERCHOLESTEROLAEMIA
     Dosage: UNK
     Route: 065
     Dates: start: 2017
  16. VITAMIN B12 [Concomitant]
     Active Substance: CYANOCOBALAMIN
     Indication: PROPHYLAXIS
  17. ZOFRAN [Concomitant]
     Active Substance: ONDANSETRON HYDROCHLORIDE
     Indication: PROPHYLAXIS
     Dosage: UNK
     Route: 065
     Dates: start: 20170524
  18. SALMON OIL [Concomitant]
     Active Substance: FISH OIL
     Indication: NUTRITIONAL SUPPLEMENTATION
     Dosage: UNK
     Route: 065
     Dates: start: 2014

REACTIONS (10)
  - Hypothyroidism [Not Recovered/Not Resolved]
  - Platelet count decreased [Recovered/Resolved]
  - Diarrhoea [Recovered/Resolved]
  - Hypotension [Not Recovered/Not Resolved]
  - Hypokalaemia [Recovered/Resolved]
  - Hypopituitarism [Not Recovered/Not Resolved]
  - Hypophosphataemia [Not Recovered/Not Resolved]
  - Hypocalcaemia [Recovered/Resolved]
  - Anaemia [Not Recovered/Not Resolved]
  - White blood cell count decreased [Recovered/Resolved]

NARRATIVE: CASE EVENT DATE: 20170530
